FAERS Safety Report 7764001-8 (Version None)
Quarter: 2011Q3

REPORT INFORMATION
  Report Type: 
  Country: None (occurrence: None)
  Receive Date: 20110921
  Receipt Date: 20110916
  Transmission Date: 20111222
  Serious: Yes (Other)
  Sender: FDA-Public Use
  Company Number: US-PFIZER INC-2011221387

PATIENT
  Sex: Female

DRUGS (1)
  1. CHANTIX [Suspect]
     Dosage: UNK
     Dates: start: 20061001

REACTIONS (10)
  - AGGRESSION [None]
  - ANXIETY [None]
  - NIGHTMARE [None]
  - MENTAL DISORDER [None]
  - AMNESIA [None]
  - PANIC ATTACK [None]
  - DEPRESSION [None]
  - INSOMNIA [None]
  - TREMOR [None]
  - SUICIDAL IDEATION [None]
